FAERS Safety Report 7425877-7 (Version None)
Quarter: 2011Q2

REPORT INFORMATION
  Report Type: 
  Country: None (occurrence: None)
  Receive Date: 20110420
  Receipt Date: 20110106
  Transmission Date: 20111010
  Serious: No
  Sender: FDA-Public Use
  Company Number: US-MYLANLABS-2011S1000523

PATIENT
  Age: 67 Year
  Sex: Male

DRUGS (6)
  1. KEPPRA [Concomitant]
     Dosage: WEANING DOSES SINCE BEGINNING USE OF LAMOTRIGINE
     Route: 048
  2. MULTI-VITAMIN [Concomitant]
  3. ASPIRIN [Concomitant]
  4. LAMOTRIGINE [Suspect]
     Route: 048
  5. LAMOTRIGINE [Suspect]
     Indication: CONVULSION
     Route: 048
     Dates: start: 20101104
  6. ELIDEL [Concomitant]
     Indication: ROSACEA
     Dosage: TAKEN GREATER THAN TEN YEARS

REACTIONS (1)
  - PRURITUS [None]
